FAERS Safety Report 21049151 (Version 1)
Quarter: 2022Q3

REPORT INFORMATION
  Report Type: Spontaneous
  Country: US (occurrence: US)
  Receive Date: 20220706
  Receipt Date: 20220706
  Transmission Date: 20221026
  Serious: Yes (Other)
  Sender: FDA-Public Use
  Company Number: US-PROCTER_AND_GAMBLE-GS22060901

PATIENT
  Sex: Male

DRUGS (1)
  1. HEAD AND SHOULDERS GREEN APPLE [Suspect]
     Active Substance: PYRITHIONE ZINC
     Route: 061

REACTIONS (1)
  - Anaphylactic reaction [Unknown]
